FAERS Safety Report 5247140-5 (Version None)
Quarter: 2007Q1

REPORT INFORMATION
  Report Type: 
  Country: None (occurrence: None)
  Receive Date: 20070221
  Receipt Date: 20070212
  Transmission Date: 20070707
  Serious: Yes (Death, Other)
  Sender: FDA-Public Use
  Company Number: 163-21880-06101045

PATIENT
  Age: 81 Year
  Sex: Male

DRUGS (8)
  1. REVLIMID [Suspect]
     Indication: MYELODYSPLASTIC SYNDROME
     Dosage: 10 MG, 1 IN 1 D, ORAL, 5 MG, 1 IN 2 D, ORAL
     Route: 048
     Dates: start: 20061001, end: 20061001
  2. REVLIMID [Suspect]
     Indication: MYELOID LEUKAEMIA
     Dosage: 10 MG, 1 IN 1 D, ORAL, 5 MG, 1 IN 2 D, ORAL
     Route: 048
     Dates: start: 20061001, end: 20061001
  3. REVLIMID [Suspect]
     Indication: MYELODYSPLASTIC SYNDROME
     Dosage: 10 MG, 1 IN 1 D, ORAL, 5 MG, 1 IN 2 D, ORAL
     Route: 048
     Dates: start: 20061102
  4. REVLIMID [Suspect]
     Indication: MYELOID LEUKAEMIA
     Dosage: 10 MG, 1 IN 1 D, ORAL, 5 MG, 1 IN 2 D, ORAL
     Route: 048
     Dates: start: 20061102
  5. AVAPRO [Suspect]
     Indication: DRUG USE FOR UNKNOWN INDICATION
     Dosage: 300 MG
  6. GLIPIZIDE [Suspect]
     Indication: DRUG USE FOR UNKNOWN INDICATION
     Dosage: 10 MG
  7. BENADRYL [Suspect]
     Indication: RASH
     Dosage: 25 MG, Q6H PRN
     Dates: start: 20061030, end: 20061108
  8. TOPROL-XL [Concomitant]

REACTIONS (7)
  - ACUTE MYELOID LEUKAEMIA [None]
  - LYMPHADENOPATHY [None]
  - NEUTROPHIL COUNT DECREASED [None]
  - ORAL INFECTION [None]
  - PLATELET COUNT DECREASED [None]
  - PRURITUS [None]
  - RASH MACULAR [None]
